FAERS Safety Report 10072180 (Version 1)
Quarter: 2014Q2

REPORT INFORMATION
  Report Type: Spontaneous
  Country: US (occurrence: None)
  Receive Date: 20140410
  Receipt Date: 20140410
  Transmission Date: 20141212
  Serious: Yes (Other)
  Sender: FDA-Public Use
  Company Number: None

PATIENT
  Age: 55 Year
  Sex: Male
  Weight: 118.84 kg

DRUGS (1)
  1. PRANDIN [Suspect]
     Indication: DIABETES MELLITUS
     Route: 048

REACTIONS (2)
  - Epistaxis [None]
  - Therapy cessation [None]
